FAERS Safety Report 15607424 (Version 1)
Quarter: 2018Q4

REPORT INFORMATION
  Report Type: Spontaneous
  Country: JP (occurrence: JP)
  Receive Date: 20181112
  Receipt Date: 20181112
  Transmission Date: 20190205
  Serious: Yes (Other)
  Sender: FDA-Public Use
  Company Number: JP-CORDEN PHARMA LATINA S.P.A.-JP-2018COR000129

PATIENT

DRUGS (17)
  1. RITUXIMAB. [Suspect]
     Active Substance: RITUXIMAB
     Dosage: UNK, 6 CYCLES OF R-CHOP REGIMEN
     Route: 065
     Dates: end: 2005
  2. CYCLOPHOSPHAMIDE. [Suspect]
     Active Substance: CYCLOPHOSPHAMIDE
     Indication: B-CELL LYMPHOMA
     Dosage: UNK, 3 CYCLES R-CHASE REGIMEN
     Route: 065
     Dates: start: 2010, end: 2015
  3. VINCRISTINE [Suspect]
     Active Substance: VINCRISTINE
     Indication: B-CELL LYMPHOMA
     Dosage: UNK, 6 CYCLES OF R-CHOP REGIMEN
     Route: 065
     Dates: end: 2005
  4. FLUDARABINE [Suspect]
     Active Substance: FLUDARABINE PHOSPHATE
     Indication: B-CELL LYMPHOMA
     Dosage: UNK, 6 CYCLES OF R-FLU REGIMEN
     Route: 065
     Dates: start: 2005, end: 2010
  5. RITUXIMAB. [Suspect]
     Active Substance: RITUXIMAB
     Indication: B-CELL LYMPHOMA
     Dosage: UNK, 3 CYCLES R-CHASE REGIMEN
     Route: 065
     Dates: start: 2010, end: 2015
  6. ACLARUBICIN [Suspect]
     Active Substance: ACLARUBICIN
     Indication: B-CELL LYMPHOMA
     Dosage: UNK, ONE CYCLE OF CAG REGIMEN
     Route: 065
     Dates: start: 2010, end: 2015
  7. RITUXIMAB. [Suspect]
     Active Substance: RITUXIMAB
     Dosage: UNK, ONE CYCLE OF R-BENDA REGIMEN
     Route: 065
     Dates: start: 2010, end: 2015
  8. GRANULOCYTE COLONY STIMULATING FACTOR [Suspect]
     Active Substance: GRANULOCYTE COLONY-STIMULATING FACTOR NOS
     Indication: B-CELL LYMPHOMA
     Dosage: UNK, ONE CYCLE OF CAG REGIMEN
     Route: 065
     Dates: start: 2010, end: 2015
  9. RITUXIMAB. [Suspect]
     Active Substance: RITUXIMAB
     Dosage: UNK, 6 CYCLES OF R-FLU REGIMEN
     Route: 065
     Dates: start: 2005, end: 2010
  10. CYTARABINE. [Suspect]
     Active Substance: CYTARABINE
     Dosage: UNK, LOW DOSE, ONE CYCLE OF CAG REGIMEN
     Route: 065
     Dates: start: 2010, end: 2015
  11. DOXORUBICIN [Suspect]
     Active Substance: DOXORUBICIN
     Indication: B-CELL LYMPHOMA
     Dosage: UNK, 6 CYCLES OF R-CHOP REGIMEN
     Route: 065
     Dates: end: 2005
  12. BENDAMUSTINE [Suspect]
     Active Substance: BENDAMUSTINE
     Indication: B-CELL LYMPHOMA
     Dosage: UNK, ONE CYCLE OF R-BENDA REGIMEN
     Route: 065
     Dates: start: 2010, end: 2015
  13. DEXAMETHASONE. [Suspect]
     Active Substance: DEXAMETHASONE
     Indication: B-CELL LYMPHOMA
     Dosage: UNK, 3 CYCLES R-CHASE REGIMEN
     Route: 065
     Dates: start: 2010, end: 2015
  14. CYCLOPHOSPHAMIDE. [Suspect]
     Active Substance: CYCLOPHOSPHAMIDE
     Dosage: UNK, 6 CYCLES OF R-CHOP REGIMEN
     Route: 065
     Dates: end: 2005
  15. CYTARABINE. [Suspect]
     Active Substance: CYTARABINE
     Indication: B-CELL LYMPHOMA
     Dosage: UNK, 3 CYCLES R-CHASE REGIMEN
     Route: 065
     Dates: start: 2010, end: 2015
  16. PREDNISOLONE. [Suspect]
     Active Substance: PREDNISOLONE
     Indication: B-CELL LYMPHOMA
     Dosage: UNK, 6 CYCLES OF R-CHOP REGIMEN
     Route: 065
     Dates: end: 2005
  17. ETOPOSIDE. [Suspect]
     Active Substance: ETOPOSIDE
     Indication: B-CELL LYMPHOMA
     Dosage: UNK, 3 CYCLES R-CHASE REGIMEN
     Route: 065
     Dates: start: 2010, end: 2015

REACTIONS (3)
  - Acute myeloid leukaemia [Unknown]
  - Myelodysplastic syndrome [Unknown]
  - Diffuse large B-cell lymphoma [Unknown]
